FAERS Safety Report 4297160-2 (Version None)
Quarter: 2004Q1

REPORT INFORMATION
  Report Type: 
  Country: None (occurrence: None)
  Receive Date: 20040217
  Receipt Date: 20040217
  Transmission Date: 20041129
  Serious: Yes (Hospitalization, Other)
  Sender: FDA-Public Use
  Company Number: None

PATIENT
  Age: 36 Year
  Sex: Female
  Weight: 61.4 kg

DRUGS (1)
  1. OXYCODONE SOLUTION [Suspect]
     Indication: PAIN
     Dosage: 20 MG Q 4 H JT (1ST DOSE)
     Dates: start: 20031114

REACTIONS (5)
  - ERYTHEMA [None]
  - NAUSEA [None]
  - RASH [None]
  - RASH MACULAR [None]
  - SWELLING FACE [None]
